FAERS Safety Report 9262727 (Version 1)
Quarter: 2013Q2

REPORT INFORMATION
  Report Type: Spontaneous
  Country: US (occurrence: None)
  Receive Date: 20130426
  Receipt Date: 20130426
  Transmission Date: 20140414
  Serious: Yes (Hospitalization)
  Sender: FDA-Public Use
  Company Number: None

PATIENT
  Age: 62 Year
  Sex: Male
  Weight: 88.27 kg

DRUGS (3)
  1. CISPLATIN [Suspect]
     Dosage: TOTAL DOSE 218 MG
  2. PERCOCET [Concomitant]
  3. METHADONE [Concomitant]

REACTIONS (4)
  - Mental status changes [None]
  - Depressed level of consciousness [None]
  - Electrolyte imbalance [None]
  - Intentional drug misuse [None]
